FAERS Safety Report 22941329 (Version 2)
Quarter: 2023Q4

REPORT INFORMATION
  Report Type: Spontaneous
  Country: US (occurrence: US)
  Receive Date: 20230914
  Receipt Date: 20231018
  Transmission Date: 20240110
  Serious: No
  Sender: FDA-Public Use
  Company Number: US-009507513-2309USA002015

PATIENT
  Age: 76 Year
  Sex: Female

DRUGS (4)
  1. SIVEXTRO [Suspect]
     Active Substance: TEDIZOLID PHOSPHATE
     Indication: Mycobacterium chelonae infection
     Dosage: 200 MG ONCE A DAY
     Route: 048
     Dates: start: 202011, end: 202308
  2. LINEZOLID [Concomitant]
     Active Substance: LINEZOLID
  3. NUZYRA [Concomitant]
     Active Substance: OMADACYCLINE
  4. CLOFAZIMINE [Concomitant]
     Active Substance: CLOFAZIMINE

REACTIONS (10)
  - Peripheral swelling [Not Recovered/Not Resolved]
  - Bacterial infection [Unknown]
  - Synovial cyst [Unknown]
  - Carpal tunnel syndrome [Unknown]
  - Cyst [Unknown]
  - Joint swelling [Not Recovered/Not Resolved]
  - Illness [Unknown]
  - Product supply issue [Unknown]
  - Product dose omission issue [Unknown]
  - Drug effective for unapproved indication [Unknown]

NARRATIVE: CASE EVENT DATE: 20230801
